FAERS Safety Report 11681083 (Version 3)
Quarter: 2015Q4

REPORT INFORMATION
  Report Type: Spontaneous
  Country: US (occurrence: US)
  Receive Date: 20151027
  Receipt Date: 20151110
  Transmission Date: 20160304
  Serious: No
  Sender: FDA-Public Use
  Company Number: US-ELI_LILLY_AND_COMPANY-US201008001500

PATIENT
  Age: 63 Year
  Sex: Female

DRUGS (28)
  1. FORTEO [Suspect]
     Active Substance: TERIPARATIDE
     Dosage: 20 UG, DAILY (1/D)
  2. MULTIVITAMIN AND MINERAL [Concomitant]
     Dosage: UNK, DAILY (1/D)
  3. CRESTOR [Concomitant]
     Active Substance: ROSUVASTATIN CALCIUM
     Dosage: 20 MG, EACH EVENING
  4. LEVOTHYROXINE. [Concomitant]
     Active Substance: LEVOTHYROXINE
     Dosage: 0.05 MG, EACH MORNING
  5. COREG [Concomitant]
     Active Substance: CARVEDILOL
     Dosage: 3.125 MG, 2/D
  6. ISOSORBIDE MONONITRATE. [Concomitant]
     Active Substance: ISOSORBIDE MONONITRATE
     Dosage: 30 MG, DAILY (1/D)
  7. BUPROPION HCL [Concomitant]
     Active Substance: BUPROPION HYDROCHLORIDE
     Dosage: 150 MG, 2/D
  8. OXYBUTYN [Concomitant]
     Dosage: 1 D/F, EACH EVENING
  9. CHANTIX [Concomitant]
     Active Substance: VARENICLINE TARTRATE
     Dosage: 1 MG, 2/D
  10. NITROGLYCERINE [Concomitant]
     Active Substance: NITROGLYCERIN
     Dosage: 1 D/F, AS NEEDED
     Route: 060
  11. FORTEO [Suspect]
     Active Substance: TERIPARATIDE
     Dosage: 20 UG, DAILY (1/D)
  12. ZOLPIDEM [Concomitant]
     Active Substance: ZOLPIDEM\ZOLPIDEM TARTRATE
     Dosage: 10 MG, EACH EVENING
  13. CALCIUM [Concomitant]
     Active Substance: CALCIUM
     Dosage: UNK D/F, 3/D
  14. VITAMIN D [Concomitant]
     Active Substance: CHOLECALCIFEROL
     Dosage: 1000 IU, EACH EVENING
  15. SOMA [Concomitant]
     Active Substance: CARISOPRODOL
     Dosage: 350 MG, 3/D
  16. LORAZEPAM. [Concomitant]
     Active Substance: LORAZEPAM
     Dosage: 1 MG, 3/D
  17. FORTEO [Suspect]
     Active Substance: TERIPARATIDE
     Indication: OSTEOPOROSIS
     Dosage: 20 UG, QD
     Route: 065
  18. VITAMINS [Concomitant]
     Active Substance: VITAMINS
  19. POTASSIUM CHLORATE [Concomitant]
     Active Substance: POTASSIUM CHLORATE
     Dosage: 20 MEQ, EACH MORNING
  20. FUROSEMIDE. [Concomitant]
     Active Substance: FUROSEMIDE
     Dosage: 40 MG, DAILY (1/D)
  21. OMEPRAZOLE. [Concomitant]
     Active Substance: OMEPRAZOLE
     Dosage: UNK, DAILY (1/D)
  22. FOLIC ACID. [Concomitant]
     Active Substance: FOLIC ACID
     Dosage: 1 MG, DAILY (1/D)
  23. CALCIUM PLUS D3 [Concomitant]
  24. FORTEO [Suspect]
     Active Substance: TERIPARATIDE
     Dosage: 20 UG, QD
     Route: 065
     Dates: end: 201103
  25. NORCO [Concomitant]
     Active Substance: ACETAMINOPHEN\HYDROCODONE BITARTRATE
     Dosage: 10325 MG, EVERY 6 HRS
  26. ZOFRAN [Concomitant]
     Active Substance: ONDANSETRON HYDROCHLORIDE
     Dosage: 4 MG, AS NEEDED
  27. BENADRYL [Concomitant]
     Active Substance: DIPHENHYDRAMINE HYDROCHLORIDE
     Dosage: 50 MG, EACH EVENING
  28. OXYGEN. [Concomitant]
     Active Substance: OXYGEN
     Dosage: UNK

REACTIONS (15)
  - Dysstasia [Unknown]
  - Foot deformity [Unknown]
  - Influenza [Unknown]
  - Intentional product misuse [Unknown]
  - Vomiting [Recovered/Resolved]
  - Nausea [Recovered/Resolved]
  - Groin pain [Unknown]
  - Foot fracture [Recovering/Resolving]
  - Dizziness [Unknown]
  - Dysgeusia [Unknown]
  - Visual acuity reduced [Unknown]
  - Malaise [Unknown]
  - Muscle spasms [Unknown]
  - Pneumonia [Recovered/Resolved]
  - Diarrhoea [Recovered/Resolved]

NARRATIVE: CASE EVENT DATE: 20101015
